FAERS Safety Report 23959270 (Version 5)
Quarter: 2024Q3

REPORT INFORMATION
  Report Type: Spontaneous
  Country: US (occurrence: US)
  Receive Date: 20240611
  Receipt Date: 20240808
  Transmission Date: 20241017
  Serious: Yes (Hospitalization)
  Sender: ROCHE
  Company Number: US-ROCHE-3578584

PATIENT
  Sex: Male

DRUGS (1)
  1. COTELLIC [Suspect]
     Active Substance: COBIMETINIB
     Indication: Warm autoimmune haemolytic anaemia
     Dosage: 7 TABS DAILY FOR 1 WEEK , 1 TAB A DAY FOR 21 DAYS
     Route: 048
     Dates: start: 202406

REACTIONS (7)
  - Haemoglobin decreased [Unknown]
  - Off label use [Unknown]
  - Vision blurred [Unknown]
  - Eye haemorrhage [Recovered/Resolved]
  - Visual impairment [Unknown]
  - Dehydration [Unknown]
  - Ocular neoplasm [Unknown]
